FAERS Safety Report 7780649-9 (Version None)
Quarter: 2011Q3

REPORT INFORMATION
  Report Type: 
  Country: None (occurrence: None)
  Receive Date: 20110927
  Receipt Date: 20110331
  Transmission Date: 20111222
  Serious: No
  Sender: FDA-Public Use
  Company Number: US-BRISTOL-MYERS SQUIBB COMPANY-15543994

PATIENT
  Age: 53 Year
  Sex: Male

DRUGS (2)
  1. AVAPRO [Suspect]
     Indication: HYPERTENSION
     Dosage: COUPLE OF YEARS AGO.
  2. ASPIRIN [Concomitant]
     Dosage: 1 DF = 1 ASPIRIN

REACTIONS (3)
  - DYSPNOEA [None]
  - ABDOMINAL DISCOMFORT [None]
  - FEELING ABNORMAL [None]
